FAERS Safety Report 16116463 (Version 6)
Quarter: 2021Q1

REPORT INFORMATION
  Report Type: Other
  Country: CA (occurrence: CA)
  Receive Date: 20190326
  Receipt Date: 20210304
  Transmission Date: 20210419
  Serious: Yes (Other)
  Sender: FDA-Public Use
  Company Number: CA-ROCHE-2245688

PATIENT
  Age: 55 Year
  Sex: Female

DRUGS (7)
  1. GLICLAZIDE [Concomitant]
     Active Substance: GLICLAZIDE
  2. MODAFINIL. [Concomitant]
     Active Substance: MODAFINIL
     Indication: FATIGUE
  3. BETAMETHASONE. [Concomitant]
     Active Substance: BETAMETHASONE
  4. ESCITALOPRAM [Concomitant]
     Active Substance: ESCITALOPRAM OXALATE
     Indication: DEPRESSION
  5. OCREVUS [Suspect]
     Active Substance: OCRELIZUMAB
     Indication: RELAPSING-REMITTING MULTIPLE SCLEROSIS
     Dosage: 300 MG AT DAY 0 AND 14, THEN 600 MG EVERY 6 MONTH
     Route: 042
     Dates: start: 20190108
  6. ACITRETIN. [Concomitant]
     Active Substance: ACITRETIN
  7. METFORMIN [Concomitant]
     Active Substance: METFORMIN HYDROCHLORIDE

REACTIONS (12)
  - Oropharyngeal pain [Recovered/Resolved]
  - Hiccups [Recovered/Resolved]
  - Hyperhidrosis [Recovered/Resolved]
  - Stress [Unknown]
  - Pruritus [Recovered/Resolved]
  - Productive cough [Recovered/Resolved]
  - Fatigue [Not Recovered/Not Resolved]
  - Laryngitis [Unknown]
  - Lower respiratory tract infection [Unknown]
  - Infusion related reaction [Recovered/Resolved]
  - Cerebrovascular disorder [Unknown]
  - Flushing [Recovered/Resolved]

NARRATIVE: CASE EVENT DATE: 20190108
